FAERS Safety Report 10150359 (Version 1)
Quarter: 2014Q2

REPORT INFORMATION
  Report Type: Report from Study
  Country: US (occurrence: US)
  Receive Date: 20140502
  Receipt Date: 20140502
  Transmission Date: 20141212
  Serious: Yes (Hospitalization)
  Sender: FDA-Public Use
  Company Number: US-ALEXION-A201401635

PATIENT
  Sex: 0

DRUGS (53)
  1. ECULIZUMAB [Suspect]
     Indication: HAEMOLYTIC URAEMIC SYNDROME
     Dosage: 30 ML, Q2W
     Route: 042
  2. ZEMPLAR [Concomitant]
     Indication: PRODUCT USED FOR UNKNOWN INDICATION
     Dosage: 3 ?G, TIW
     Route: 042
  3. PATANOL [Concomitant]
     Indication: PRODUCT USED FOR UNKNOWN INDICATION
     Dosage: 1 GTT, BID OU
     Route: 047
  4. VENOFER [Concomitant]
     Indication: RENAL FAILURE CHRONIC
     Dosage: 2.5 ML, TWO TIMES A WEEK
     Route: 042
  5. VENOFER [Concomitant]
     Indication: HYPERPARATHYROIDISM SECONDARY
  6. VENOFER [Concomitant]
     Indication: SECONDARY HYPERTENSION
  7. VENOFER [Concomitant]
     Indication: HYPERTENSIVE NEPHROPATHY
  8. VENOFER [Concomitant]
     Indication: RENAL OSTEODYSTROPHY
  9. CHOLECALCIFEROL [Concomitant]
     Indication: PRODUCT USED FOR UNKNOWN INDICATION
     Dosage: 1 ML, QD
     Route: 048
     Dates: start: 20140424
  10. HEPARIN [Concomitant]
     Indication: PRODUCT USED FOR UNKNOWN INDICATION
     Dosage: 5000 UNIT/ML, UNK
     Route: 050
  11. CLARITIN                           /00917501/ [Concomitant]
     Indication: CONJUNCTIVITIS ALLERGIC
     Dosage: 5 ML, QD
     Route: 048
  12. CLARITIN                           /00917501/ [Concomitant]
     Indication: RHINITIS ALLERGIC
  13. CLARITIN                           /00917501/ [Concomitant]
     Indication: RENAL FAILURE CHRONIC
  14. B COMPLEX                          /00212701/ [Concomitant]
     Indication: RENAL FAILURE CHRONIC
     Dosage: 0.5 TABS DAILY
     Route: 048
  15. B COMPLEX                          /00212701/ [Concomitant]
     Indication: HYPERTENSIVE NEPHROPATHY
  16. B COMPLEX                          /00212701/ [Concomitant]
     Indication: SECONDARY HYPERTENSION
  17. B COMPLEX                          /00212701/ [Concomitant]
     Indication: RENAL OSTEODYSTROPHY
  18. ENALAPRIL [Concomitant]
     Indication: CLOSTRIDIUM DIFFICILE COLITIS
     Dosage: 2.5 ML, BID
     Route: 048
  19. TENORMIN [Concomitant]
     Indication: RENAL FAILURE CHRONIC
     Dosage: 12.5 MG, QD
     Route: 048
     Dates: start: 20140424
  20. TENORMIN [Concomitant]
     Indication: HYPERTENSIVE NEPHROPATHY
  21. TENORMIN [Concomitant]
     Indication: SECONDARY HYPERTENSION
  22. TENORMIN [Concomitant]
     Indication: HYPERPARATHYROIDISM SECONDARY
  23. TENORMIN [Concomitant]
     Indication: RENAL OSTEODYSTROPHY
  24. RENVELA [Concomitant]
     Indication: RENAL FAILURE CHRONIC
     Dosage: 2.4 G, TID
     Route: 048
  25. RENVELA [Concomitant]
     Indication: HYPERPARATHYROIDISM SECONDARY
     Dosage: 0.8 G, PRN QID
  26. RENVELA [Concomitant]
     Indication: SECONDARY HYPERTENSION
  27. RENVELA [Concomitant]
     Indication: HYPERTENSIVE NEPHROPATHY
  28. RENVELA [Concomitant]
     Indication: RENAL OSTEODYSTROPHY
  29. NORVASC [Concomitant]
     Indication: RENAL FAILURE CHRONIC
     Dosage: 2.5 MG,TIW  PRN
     Route: 048
  30. NORVASC [Concomitant]
     Indication: HYPERPARATHYROIDISM SECONDARY
  31. NORVASC [Concomitant]
     Indication: SECONDARY HYPERTENSION
  32. NORVASC [Concomitant]
     Indication: HYPERTENSIVE NEPHROPATHY
  33. NORVASC [Concomitant]
     Indication: RENAL OSTEODYSTROPHY
  34. KAYEXALATE [Concomitant]
     Indication: RENAL FAILURE CHRONIC
     Dosage: 5 G, BID
     Route: 050
  35. KAYEXALATE [Concomitant]
     Indication: HYPERPARATHYROIDISM
  36. KAYEXALATE [Concomitant]
     Indication: SECONDARY HYPERTENSION
  37. KAYEXALATE [Concomitant]
     Indication: HYPERTENSIVE NEPHROPATHY
  38. KAYEXALATE [Concomitant]
     Indication: RENAL OSTEODYSTROPHY
  39. CLONIDINE [Concomitant]
     Indication: RENAL FAILURE CHRONIC
     Dosage: 0.5 ML, PRN
     Route: 050
  40. CLONIDINE [Concomitant]
     Indication: HYPERPARATHYROIDISM SECONDARY
  41. CLONIDINE [Concomitant]
     Indication: SECONDARY HYPERTENSION
  42. CLONIDINE [Concomitant]
     Indication: HYPERTENSIVE NEPHROPATHY
  43. CLONIDINE [Concomitant]
     Indication: RENAL OSTEODYSTROPHY
  44. SOMATROPIN [Concomitant]
     Indication: BODY HEIGHT BELOW NORMAL
     Dosage: 0.8 MG, QD
     Route: 058
  45. SOMATROPIN [Concomitant]
     Indication: VITAMIN D DEFICIENCY
  46. RANITIDINE [Concomitant]
     Indication: RENAL FAILURE CHRONIC
     Dosage: 2.5 ML, BID
     Route: 048
  47. RANITIDINE [Concomitant]
     Indication: SECONDARY HYPERTENSION
  48. RANITIDINE [Concomitant]
     Indication: HYPERTENSIVE NEPHROPATHY
  49. CARNITOR [Concomitant]
     Indication: RENAL FAILURE CHRONIC
     Dosage: 4 ML, QIW
     Route: 042
  50. CARNITOR [Concomitant]
     Indication: SECONDARY HYPERTENSION
  51. CARNITOR [Concomitant]
     Indication: HYPERTENSIVE NEPHROPATHY
  52. NEPHRO-VITE                        /01801401/ [Concomitant]
     Indication: VITAMIN SUPPLEMENTATION
     Dosage: UNK
     Route: 065
     Dates: start: 20140424
  53. EMLA                               /00675501/ [Concomitant]
     Indication: PRODUCT USED FOR UNKNOWN INDICATION
     Route: 061

REACTIONS (1)
  - Headache [Not Recovered/Not Resolved]
